FAERS Safety Report 20771796 (Version 1)
Quarter: 2022Q2

REPORT INFORMATION
  Report Type: Spontaneous
  Country: US (occurrence: US)
  Receive Date: 20220430
  Receipt Date: 20220430
  Transmission Date: 20220721
  Serious: Yes (Hospitalization)
  Sender: FDA-Public Use
  Company Number: US-drreddys-LIT/USA/22/0149379

PATIENT
  Age: 39 Year
  Sex: Male

DRUGS (4)
  1. DOBUTAMINE HYDROCHLORIDE [Suspect]
     Active Substance: DOBUTAMINE HYDROCHLORIDE
     Indication: Systemic right ventricle
  2. DOBUTAMINE HYDROCHLORIDE [Suspect]
     Active Substance: DOBUTAMINE HYDROCHLORIDE
     Indication: Cardiogenic shock
  3. MILRINONE [Suspect]
     Active Substance: MILRINONE
     Indication: Systemic right ventricle
  4. MILRINONE [Suspect]
     Active Substance: MILRINONE
     Indication: Cardiogenic shock

REACTIONS (1)
  - Drug ineffective [Unknown]
